FAERS Safety Report 5394584-7 (Version None)
Quarter: 2007Q3

REPORT INFORMATION
  Report Type: 
  Country: None (occurrence: None)
  Receive Date: 20070723
  Receipt Date: 20070712
  Transmission Date: 20080115
  Serious: Yes (Hospitalization, Other)
  Sender: FDA-Public Use
  Company Number: DE-SHR-DE-2007-018123

PATIENT
  Age: 53 Year
  Sex: Male
  Weight: 83 kg

DRUGS (3)
  1. BETASERON [Suspect]
     Dosage: 8 MIU, EVERY 2D
     Route: 058
     Dates: start: 20061101
  2. SERTRALINE [Concomitant]
     Dosage: 75 MG/D, 1X/DAY
     Route: 048
     Dates: start: 20060814
  3. BISOPROLOL FUMARATE [Concomitant]
     Dosage: UNK, UNK

REACTIONS (1)
  - RECTAL CANCER STAGE III [None]
